FAERS Safety Report 9680399 (Version 2)
Quarter: 2014Q1

REPORT INFORMATION
  Report Type: Spontaneous
  Country: DE (occurrence: DE)
  Receive Date: 20131111
  Receipt Date: 20140114
  Transmission Date: 20141002
  Serious: Yes (Other)
  Sender: FDA-Public Use
  Company Number: DE-009507513-1311DEU003518

PATIENT
  Age: 68 Year
  Sex: Female
  Weight: 79 kg

DRUGS (2)
  1. JANUMET [Suspect]
     Indication: DIABETES MELLITUS
     Dosage: 50/850 MG, TID, TOTAL DAILY DOSAGE: 150/2550 MG
     Route: 048
     Dates: start: 201306, end: 201311
  2. BELOC-ZOK [Concomitant]

REACTIONS (3)
  - Loss of consciousness [Recovering/Resolving]
  - Prescribed overdose [Unknown]
  - Inappropriate schedule of drug administration [Unknown]
